FAERS Safety Report 5786199-3 (Version None)
Quarter: 2008Q2

REPORT INFORMATION
  Report Type: 
  Country: None (occurrence: None)
  Receive Date: 20080624
  Receipt Date: 20080619
  Transmission Date: 20081010
  Serious: Yes (Death)
  Sender: FDA-Public Use
  Company Number: B0526132A

PATIENT
  Age: 68 Year
  Sex: Male

DRUGS (10)
  1. LANOXIN [Suspect]
     Indication: ATRIAL FIBRILLATION
     Route: 042
     Dates: start: 20080613, end: 20080613
  2. OMEPRAZOLE [Concomitant]
     Route: 042
     Dates: start: 20080610, end: 20080613
  3. PIPERACILLIN AND TAZOBACTAM [Concomitant]
     Route: 042
     Dates: start: 20080610, end: 20080613
  4. ISOPURAMIN [Concomitant]
     Route: 042
     Dates: start: 20080610, end: 20080613
  5. DEXTROSE 5% [Concomitant]
     Route: 042
  6. HUMAN INSULIN [Concomitant]
     Route: 042
     Dates: start: 20080610, end: 20080613
  7. NORMOSOL R [Concomitant]
     Route: 042
     Dates: start: 20080610, end: 20080613
  8. FUROSEMIDE [Concomitant]
     Route: 042
     Dates: start: 20080610, end: 20080613
  9. POTASSIUM CHLORIDE [Concomitant]
     Route: 042
     Dates: start: 20080610, end: 20080613
  10. HEPARIN [Concomitant]
     Route: 058
     Dates: start: 20080610, end: 20080613

REACTIONS (3)
  - BRONCHOPNEUMONIA [None]
  - CARDIAC ARREST [None]
  - VENTRICULAR FIBRILLATION [None]
